FAERS Safety Report 9787249 (Version 2)
Quarter: 2013Q4

REPORT INFORMATION
  Report Type: Spontaneous
  Country: IT (occurrence: IT)
  Receive Date: 20131229
  Receipt Date: 20131229
  Transmission Date: 20140711
  Serious: Yes (Life-Threatening, Hospitalization, Other)
  Sender: FDA-Public Use
  Company Number: IT-ROCHE-940201359002

PATIENT
  Age: 12 Year
  Sex: Male

DRUGS (2)
  1. ROFERON-A [Suspect]
     Indication: CHRONIC HEPATITIS B
     Route: 065
  2. ROFERON-A [Suspect]
     Route: 065

REACTIONS (1)
  - B-cell lymphoma [Not Recovered/Not Resolved]
